FAERS Safety Report 25188844 (Version 1)
Quarter: 2025Q2

REPORT INFORMATION
  Report Type: Spontaneous
  Country: US (occurrence: None)
  Receive Date: 20250410
  Receipt Date: 20250410
  Transmission Date: 20250717
  Serious: No
  Sender: FDA-CTU
  Company Number: None

PATIENT
  Age: 76 Year
  Sex: Female

DRUGS (1)
  1. LENALIDOMIDE [Suspect]
     Active Substance: LENALIDOMIDE
     Indication: B-cell lymphoma
     Dosage: 15MG QD ORAL
     Route: 048
     Dates: start: 20250303

REACTIONS (2)
  - Faecaloma [None]
  - Constipation [None]

NARRATIVE: CASE EVENT DATE: 20250409
